FAERS Safety Report 11161594 (Version 1)
Quarter: 2015Q2

REPORT INFORMATION
  Report Type: Spontaneous
  Country: US (occurrence: US)
  Receive Date: 20150604
  Receipt Date: 20150604
  Transmission Date: 20150821
  Serious: No
  Sender: FDA-Public Use
  Company Number: US-SA-2014SA087179

PATIENT
  Age: 46 Year
  Sex: Male

DRUGS (1)
  1. LANTUS SOLOSTAR [Suspect]
     Active Substance: INSULIN GLARGINE
     Indication: TYPE 1 DIABETES MELLITUS
     Dosage: DOSE:51 UNIT(S)
     Route: 058
     Dates: start: 2010

REACTIONS (2)
  - Underdose [Unknown]
  - Stomach mass [Unknown]

NARRATIVE: CASE EVENT DATE: 20140627
